FAERS Safety Report 4472564-3 (Version None)
Quarter: 2004Q4

REPORT INFORMATION
  Report Type: 
  Country: None (occurrence: None)
  Receive Date: 20041013
  Receipt Date: 20041001
  Transmission Date: 20050328
  Serious: Yes (Death)
  Sender: FDA-Public Use
  Company Number: GB-JNJFOC-20040908987

PATIENT
  Sex: Male
  Weight: 112 kg

DRUGS (8)
  1. REOPRO [Suspect]
     Route: 042
  2. REOPRO [Suspect]
     Indication: ANGIOPLASTY
     Route: 042
  3. ASPIRIN [Concomitant]
     Indication: MYOCARDIAL INFARCTION
     Route: 049
  4. CLOPIDOGREL [Concomitant]
     Route: 049
  5. ATROVASTATIN [Concomitant]
     Route: 049
  6. ATENOLOL [Concomitant]
     Indication: HYPERTENSION
     Route: 049
  7. RAMIPRIL [Concomitant]
     Indication: PROPHYLAXIS
     Route: 049
  8. GTN SPRAY [Concomitant]
     Indication: ANGINA PECTORIS
     Route: 060

REACTIONS (1)
  - SUDDEN DEATH [None]
